FAERS Safety Report 7512083-0 (Version None)
Quarter: 2011Q2

REPORT INFORMATION
  Report Type: 
  Country: None (occurrence: None)
  Receive Date: 20110531
  Receipt Date: 20110523
  Transmission Date: 20111010
  Serious: No
  Sender: FDA-Public Use
  Company Number: TW-BAYER-2010-001102

PATIENT
  Age: 41 Year
  Sex: Female

DRUGS (1)
  1. BETAFERON [Suspect]
     Dosage: 1 ML, QOD
     Route: 058

REACTIONS (6)
  - INJECTION SITE REACTION [None]
  - INSOMNIA [None]
  - MUSCLE SPASMS [None]
  - HEADACHE [None]
  - NERVOUSNESS [None]
  - INFLUENZA LIKE ILLNESS [None]
